FAERS Safety Report 26086700 (Version 1)
Quarter: 2025Q4

REPORT INFORMATION
  Report Type: Report from Study
  Country: CA (occurrence: CA)
  Receive Date: 20251125
  Receipt Date: 20251125
  Transmission Date: 20260118
  Serious: Yes (Hospitalization, Other)
  Sender: ABBVIE
  Company Number: CA-ABBVIE-6559453

PATIENT
  Age: 63 Year
  Sex: Female

DRUGS (1)
  1. RINVOQ [Suspect]
     Active Substance: UPADACITINIB
     Indication: Crohn^s disease
     Dosage: FORM STRENGTH 30 MG
     Route: 048
     Dates: end: 20251101

REACTIONS (8)
  - Myocardial infarction [Unknown]
  - Dizziness [Unknown]
  - Vomiting [Unknown]
  - Dysstasia [Unknown]
  - Chest pain [Unknown]
  - Arterial occlusive disease [Unknown]
  - Rosacea [Recovering/Resolving]
  - Muscle strain [Unknown]

NARRATIVE: CASE EVENT DATE: 20250101
